FAERS Safety Report 20825338 (Version 2)
Quarter: 2023Q4

REPORT INFORMATION
  Report Type: Report from Study
  Country: US (occurrence: US)
  Receive Date: 20220513
  Receipt Date: 20231116
  Transmission Date: 20240110
  Serious: Yes (Other)
  Sender: FDA-Public Use
  Company Number: US-ABBVIE-22K-163-4393268-00

PATIENT
  Sex: Female

DRUGS (2)
  1. HUMIRA [Suspect]
     Active Substance: ADALIMUMAB
     Indication: Psoriasis
     Dosage: CITRATE FREE
     Route: 058
     Dates: start: 20201114
  2. HUMIRA [Suspect]
     Active Substance: ADALIMUMAB
     Dosage: CITRATE FREE
     Route: 058
     Dates: end: 202203

REACTIONS (14)
  - Renal failure [Not Recovered/Not Resolved]
  - Fibromyalgia [Unknown]
  - Asthma [Unknown]
  - Osteoarthritis [Unknown]
  - Hernia [Unknown]
  - Cardiac disorder [Unknown]
  - Unevaluable event [Unknown]
  - Blood potassium decreased [Unknown]
  - Sepsis [Unknown]
  - Gastroenteritis viral [Not Recovered/Not Resolved]
  - Gastroenteritis viral [Recovered/Resolved]
  - COVID-19 [Unknown]
  - Immunodeficiency [Unknown]
  - Dehydration [Unknown]
